FAERS Safety Report 13579694 (Version 1)
Quarter: 2017Q2

REPORT INFORMATION
  Report Type: Spontaneous
  Country: US (occurrence: US)
  Receive Date: 20170525
  Receipt Date: 20170525
  Transmission Date: 20170830
  Serious: Yes (Other)
  Sender: FDA-Public Use
  Company Number: US-CLINIGEN GROUP PLC/ CLINIGEN HEALTHCARE LTD-E2B_00003078

PATIENT
  Age: 46 Year
  Sex: Male

DRUGS (2)
  1. FOSCARNET?SODIUM [Suspect]
     Active Substance: FOSCARNET SODIUM
     Indication: CYTOMEGALOVIRUS INFECTION
     Route: 042
     Dates: start: 19910131, end: 19910424
  2. ETOPOSIDE. [Concomitant]
     Active Substance: ETOPOSIDE
     Route: 065
     Dates: start: 19910215

REACTIONS (1)
  - Neutropenia [Unknown]

NARRATIVE: CASE EVENT DATE: 19910424
